FAERS Safety Report 8804864 (Version 3)
Quarter: 2013Q2

REPORT INFORMATION
  Report Type: Report from Study
  Country: FR (occurrence: FR)
  Receive Date: 20120924
  Receipt Date: 20130624
  Transmission Date: 20140414
  Serious: Yes (Other)
  Sender: FDA-Public Use
  Company Number: FR-ROCHE-1127137

PATIENT
  Age: 58 Year
  Sex: Male
  Weight: 73 kg

DRUGS (4)
  1. TOCILIZUMAB [Suspect]
     Indication: RHEUMATOID ARTHRITIS
     Dosage: 600 MG/ MONTHLY
     Route: 065
     Dates: start: 20120416
  2. TOCILIZUMAB [Suspect]
     Route: 065
     Dates: start: 20120514
  3. TOCILIZUMAB [Suspect]
     Route: 065
     Dates: start: 20120606
  4. METHOTREXATE [Concomitant]
     Route: 065

REACTIONS (2)
  - Myocardial infarction [Recovered/Resolved with Sequelae]
  - Bronchitis [Unknown]
